FAERS Safety Report 12132904 (Version 1)
Quarter: 2016Q1

REPORT INFORMATION
  Report Type: Spontaneous
  Country: US (occurrence: None)
  Receive Date: 20160229
  Receipt Date: 20160229
  Transmission Date: 20160526
  Serious: No
  Sender: FDA-Public Use
  Company Number: None

PATIENT
  Age: 53 Year
  Sex: Female
  Weight: 71.22 kg

DRUGS (4)
  1. FISH OIL [Concomitant]
     Active Substance: FISH OIL
  2. ESCITALOPRAM [Suspect]
     Active Substance: ESCITALOPRAM OXALATE
     Indication: DEPRESSION
     Dosage: 10 MG (1 PILL) ONCE DAILY TAKEN BY MOUTH
     Route: 048
     Dates: start: 20150715, end: 20160208
  3. RED YEAST RICE [Concomitant]
     Active Substance: DIETARY SUPPLEMENT
  4. ESCITALOPRAM [Suspect]
     Active Substance: ESCITALOPRAM OXALATE
     Indication: GENERALISED ANXIETY DISORDER
     Dosage: 10 MG (1 PILL) ONCE DAILY TAKEN BY MOUTH
     Route: 048
     Dates: start: 20150715, end: 20160208

REACTIONS (2)
  - Muscle twitching [None]
  - Myoclonus [None]

NARRATIVE: CASE EVENT DATE: 20151018
